FAERS Safety Report 10695026 (Version 1)
Quarter: 2015Q1

REPORT INFORMATION
  Report Type: Spontaneous
  Country: PL (occurrence: PL)
  Receive Date: 20150107
  Receipt Date: 20150107
  Transmission Date: 20150721
  Serious: Yes (Life-Threatening)
  Sender: FDA-Public Use
  Company Number: PL-PERRIGO-14PL012563

PATIENT
  Age: 34 Year
  Sex: Male

DRUGS (1)
  1. NAPROSYN [Suspect]
     Active Substance: NAPROXEN
     Indication: PRODUCT USED FOR UNKNOWN INDICATION
     Dosage: 250 MG AT 0900 AND 1300
     Route: 048

REACTIONS (7)
  - Oedema mouth [Recovered/Resolved]
  - Respiratory distress [Recovered/Resolved]
  - Tongue oedema [Recovered/Resolved]
  - Rash [Recovered/Resolved]
  - Anaphylactic reaction [Recovered/Resolved]
  - Pharyngeal oedema [Recovered/Resolved]
  - Loss of consciousness [Recovered/Resolved]
